FAERS Safety Report 6212782-7 (Version None)
Quarter: 2009Q2

REPORT INFORMATION
  Report Type: 
  Country: None (occurrence: None)
  Receive Date: 20090601
  Receipt Date: 20090521
  Transmission Date: 20091009
  Serious: Yes (Other)
  Sender: FDA-Public Use
  Company Number: AE-2009-015

PATIENT
  Age: 50 Year
  Sex: Male
  Weight: 54 kg

DRUGS (3)
  1. METFORMIN HYDROCHLORIDE [Suspect]
     Indication: DIABETES MELLITUS
     Dosage: 1G, BID, ORAL
     Route: 048
     Dates: start: 20090211, end: 20090303
  2. GLICLAZIDE [Concomitant]
  3. SODIUM CHLORIDE [Concomitant]

REACTIONS (1)
  - BLISTER [None]
